FAERS Safety Report 22123649 (Version 1)
Quarter: 2023Q1

REPORT INFORMATION
  Report Type: Spontaneous
  Country: US (occurrence: None)
  Receive Date: 20230322
  Receipt Date: 20230322
  Transmission Date: 20230417
  Serious: Yes (Hospitalization)
  Sender: FDA-Public Use
  Company Number: 2023A062008

PATIENT
  Age: 90 Year
  Sex: Male

DRUGS (3)
  1. BUDESONIDE\FORMOTEROL [Suspect]
     Active Substance: BUDESONIDE\FORMOTEROL
     Indication: Chronic obstructive pulmonary disease
     Dosage: 160/4.5 MCG, TWO INHALATIONS, TWICE DAILY
     Route: 055
  2. TRAMADOL [Concomitant]
     Active Substance: TRAMADOL
  3. LYRICA [Concomitant]
     Active Substance: PREGABALIN

REACTIONS (5)
  - Pneumonia [Recovered/Resolved]
  - Hypotension [Not Recovered/Not Resolved]
  - Inguinal hernia [Not Recovered/Not Resolved]
  - Umbilical hernia [Recovered/Resolved]
  - Memory impairment [Not Recovered/Not Resolved]

NARRATIVE: CASE EVENT DATE: 20220101
